FAERS Safety Report 5608863-9 (Version None)
Quarter: 2008Q1

REPORT INFORMATION
  Report Type: 
  Country: None (occurrence: None)
  Receive Date: 20080131
  Receipt Date: 20080122
  Transmission Date: 20080703
  Serious: Yes (Hospitalization)
  Sender: FDA-Public Use
  Company Number: FR-BAYER-200810835GPV

PATIENT
  Age: 50 Year
  Sex: Male

DRUGS (4)
  1. CIFLOX [Suspect]
     Indication: ENTEROBACTER INFECTION
     Dosage: UNIT DOSE: 400 MG
     Route: 042
     Dates: start: 20071126, end: 20071210
  2. NEXIUM [Suspect]
     Indication: DRUG USE FOR UNKNOWN INDICATION
     Route: 042
     Dates: start: 20071122, end: 20071209
  3. THIOPENTAL SODIUM [Suspect]
     Indication: INTRACRANIAL PRESSURE INCREASED
     Route: 042
     Dates: start: 20071123, end: 20071207
  4. ROCEPHIN [Suspect]
     Indication: ENTEROBACTER INFECTION
     Dosage: UNIT DOSE: 1 G
     Route: 065
     Dates: start: 20071126, end: 20071210

REACTIONS (2)
  - LEUKOPENIA [None]
  - NEUTROPENIA [None]
